FAERS Safety Report 23963302 (Version 1)
Quarter: 2024Q2

REPORT INFORMATION
  Report Type: Spontaneous
  Country: US (occurrence: US)
  Receive Date: 20240611
  Receipt Date: 20240611
  Transmission Date: 20240716
  Serious: No
  Sender: FDA-Public Use
  Company Number: US-RIGEL Pharmaceuticals, INC-2023FOS001300

PATIENT
  Sex: Female

DRUGS (2)
  1. TAVALISSE [Suspect]
     Active Substance: FOSTAMATINIB
     Indication: Chronic lymphocytic leukaemia
     Dosage: 100 MG, BID
     Route: 048
     Dates: start: 20231020, end: 2023
  2. TAVALISSE [Suspect]
     Active Substance: FOSTAMATINIB
     Dosage: ONE AND HALF 100 MG TABLET, BID
     Route: 048
     Dates: start: 202311

REACTIONS (3)
  - Platelet count [Unknown]
  - Off label use [Unknown]
  - Product prescribing issue [Unknown]

NARRATIVE: CASE EVENT DATE: 20230101
